FAERS Safety Report 8375931 (Version 2)
Quarter: 2013Q1

REPORT INFORMATION
  Report Type: Report from Study
  Country: US (occurrence: US)
  Receive Date: 20120129
  Receipt Date: 20130130
  Transmission Date: 20140127
  Serious: No
  Sender: FDA-Public Use
  Company Number: US-ABBOTT-11P-163-0886965-00

PATIENT
  Age: 49 Year
  Sex: Female

DRUGS (14)
  1. HUMIRA 40 MG/0.8 ML PEN [Suspect]
     Indication: RHEUMATOID ARTHRITIS
     Dates: start: 20111205
  2. OMEPRAZOLE [Concomitant]
     Indication: PROPHYLAXIS
  3. MELATONIN [Concomitant]
     Indication: INSOMNIA
     Dosage: AT BEDTIME
  4. GENERIC EFFEXOR [Concomitant]
     Indication: DEPRESSION
  5. KLONOPIN [Concomitant]
     Indication: DEPRESSION
     Dosage: 2 IN 1 D, AS REQUIRED
  6. KLONOPIN [Concomitant]
     Indication: ANXIETY
  7. ADDERALL [Concomitant]
     Indication: FATIGUE
  8. ADDERALL [Concomitant]
  9. PREDNISONE [Concomitant]
     Indication: RHEUMATOID ARTHRITIS
     Dates: end: 20120711
  10. PREDNISONE [Concomitant]
     Dosage: WEANED OFF
     Dates: start: 20120712
  11. PREDNISONE [Concomitant]
     Dates: start: 201208
  12. LISINOPRIL [Concomitant]
     Indication: HYPERTENSION
  13. ULTRAM [Concomitant]
     Indication: ARTHRALGIA
  14. IBUPROFEN [Concomitant]
     Indication: ARTHRALGIA
     Dosage: 3 IN 1 D, AS REQUIRED

REACTIONS (13)
  - Nausea [Not Recovered/Not Resolved]
  - Vomiting [Not Recovered/Not Resolved]
  - Headache [Not Recovered/Not Resolved]
  - Arthralgia [Not Recovered/Not Resolved]
  - Fatigue [Not Recovered/Not Resolved]
  - Dyspnoea [Not Recovered/Not Resolved]
  - Chest discomfort [Not Recovered/Not Resolved]
  - Hyperhidrosis [Not Recovered/Not Resolved]
  - Feeling cold [Not Recovered/Not Resolved]
  - Rheumatoid arthritis [Not Recovered/Not Resolved]
  - Pain [Not Recovered/Not Resolved]
  - Herpes zoster [Recovered/Resolved]
  - Inappropriate schedule of drug administration [Unknown]
